FAERS Safety Report 11739670 (Version 3)
Quarter: 2015Q4

REPORT INFORMATION
  Report Type: Spontaneous
  Country: JP (occurrence: JP)
  Receive Date: 20151113
  Receipt Date: 20151207
  Transmission Date: 20160304
  Serious: Yes (Other)
  Sender: FDA-Public Use
  Company Number: PHJP2015JP018950

PATIENT
  Age: 71 Year
  Sex: Male

DRUGS (6)
  1. SANDOSTATIN LAR DEPOT [Suspect]
     Active Substance: OCTREOTIDE ACETATE
     Indication: CARCINOID SYNDROME
     Dosage: 30 MG, QMO
     Route: 030
  2. AFINITOR [Suspect]
     Active Substance: EVEROLIMUS
     Indication: PANCREATIC NEUROENDOCRINE TUMOUR
     Dosage: 10 MG, QD
     Route: 048
  3. SUNITINIB [Suspect]
     Active Substance: SUNITINIB
     Indication: MALIGNANT NEOPLASM PROGRESSION
  4. SUNITINIB [Suspect]
     Active Substance: SUNITINIB
     Indication: PANCREATIC NEUROENDOCRINE TUMOUR
     Dosage: 25 MG, QD
     Route: 048
  5. AFINITOR [Suspect]
     Active Substance: EVEROLIMUS
     Indication: METASTASES TO LIVER
  6. SUNITINIB [Suspect]
     Active Substance: SUNITINIB
     Indication: METASTASES TO LIVER

REACTIONS (7)
  - Drug ineffective [Unknown]
  - Hypertension [Unknown]
  - Platelet count decreased [Unknown]
  - Malignant neoplasm progression [Recovered/Resolved]
  - Carcinoid syndrome [Unknown]
  - Neutrophil count decreased [Unknown]
  - Flushing [Recovering/Resolving]
